FAERS Safety Report 9340984 (Version 1)
Quarter: 2013Q2

REPORT INFORMATION
  Report Type: Spontaneous
  Country: AU (occurrence: AU)
  Receive Date: 20130610
  Receipt Date: 20130610
  Transmission Date: 20140414
  Serious: Yes (Other)
  Sender: FDA-Public Use
  Company Number: AU-PFIZER INC-2013168957

PATIENT
  Age: 56 Year
  Sex: Female

DRUGS (12)
  1. REVATIO [Suspect]
     Indication: PULMONARY HYPERTENSION
     Dosage: 20 MG, 3X/DAY
  2. REVATIO [Suspect]
     Dosage: 160 MG, DAILY
  3. VIAGRA [Suspect]
     Indication: PULMONARY HYPERTENSION
     Dosage: 50 MG, 2X/DAY
  4. ACIMAX [Concomitant]
     Dosage: 20 MG, 1X/DAY
  5. FRUSEMIDE [Concomitant]
     Dosage: 80 MG, 3X/DAY
  6. LANOXIN [Concomitant]
     Dosage: 62.5 UG, 1X/DAY
  7. SPIRONOLACTONE [Concomitant]
     Dosage: 25 MG, 1X/DAY, MANE
  8. WARFARIN [Concomitant]
  9. PAROXETINE [Concomitant]
     Dosage: 40 MG, 1X/DAY,MANE
  10. BISOPROLOL [Concomitant]
     Dosage: 1.25 MG, 1X/DAY
  11. AROPAX [Concomitant]
     Dosage: 20 MG, 2X/DAY
  12. ZYLOPRIM [Concomitant]
     Dosage: 100 MG, UNK

REACTIONS (3)
  - Cardiac failure [Unknown]
  - Pulmonary hypertension [Unknown]
  - Off label use [Unknown]
